FAERS Safety Report 8474639-0 (Version None)
Quarter: 2012Q2

REPORT INFORMATION
  Report Type: 
  Country: None (occurrence: None)
  Receive Date: 20120628
  Receipt Date: 20120619
  Transmission Date: 20120825
  Serious: Yes (Other)
  Sender: FDA-Public Use
  Company Number: CA-JNJFOC-20120609580

PATIENT
  Sex: Female
  Weight: 51.2 kg

DRUGS (5)
  1. PANTOPRAZOLE SODIUM [Concomitant]
     Route: 065
  2. REMICADE [Suspect]
     Indication: PSORIATIC ARTHROPATHY
     Dosage: HAS HAD 20 INFLIXIAMB INFUSIONS
     Route: 042
     Dates: start: 20090617
  3. FOLIC ACID [Concomitant]
     Route: 065
  4. REMICADE [Suspect]
     Indication: CROHN'S DISEASE
     Dosage: HAS HAD 20 INFLIXIAMB INFUSIONS
     Route: 042
     Dates: start: 20090617
  5. METHOTREXATE [Suspect]
     Indication: PRODUCT USED FOR UNKNOWN INDICATION
     Route: 065

REACTIONS (4)
  - MOUTH ULCERATION [None]
  - DYSPHONIA [None]
  - WEIGHT DECREASED [None]
  - NASOPHARYNGITIS [None]
